FAERS Safety Report 8932471 (Version 1)
Quarter: 2012Q4

REPORT INFORMATION
  Report Type: Spontaneous
  Country: US (occurrence: None)
  Receive Date: 20121126
  Receipt Date: 20121126
  Transmission Date: 20130627
  Serious: Yes (Other)
  Sender: FDA-Public Use
  Company Number: None

PATIENT
  Age: 66 Year
  Sex: Female
  Weight: 145 kg

DRUGS (1)
  1. PRADAXA [Suspect]
     Indication: ATRIAL FIBRILLATION
     Route: 048
     Dates: start: 20121010, end: 20121107

REACTIONS (6)
  - Chest pain [None]
  - Chest discomfort [None]
  - Dyspepsia [None]
  - Abdominal pain upper [None]
  - Odynophagia [None]
  - Oesophageal pain [None]
